FAERS Safety Report 9143531 (Version 1)
Quarter: 2013Q1

REPORT INFORMATION
  Report Type: Report from Study
  Country: FR (occurrence: FR)
  Receive Date: 20130306
  Receipt Date: 20130306
  Transmission Date: 20140127
  Serious: Yes (Hospitalization)
  Sender: FDA-Public Use
  Company Number: FR-ROCHE-1198194

PATIENT
  Age: 56 Year
  Sex: Female

DRUGS (27)
  1. TOCILIZUMAB [Suspect]
     Indication: RHEUMATOID ARTHRITIS
     Route: 041
     Dates: start: 20110202
  2. TOCILIZUMAB [Suspect]
     Route: 065
     Dates: start: 20110302
  3. TOCILIZUMAB [Suspect]
     Route: 065
     Dates: start: 20110330
  4. TOCILIZUMAB [Suspect]
     Route: 065
     Dates: start: 20110427
  5. TOCILIZUMAB [Suspect]
     Dosage: 490 MG
     Route: 065
     Dates: start: 20110525
  6. TOCILIZUMAB [Suspect]
     Dosage: 496 MG
     Route: 065
     Dates: start: 20110622
  7. TOCILIZUMAB [Suspect]
     Dosage: 488 MG
     Route: 065
     Dates: start: 20110720
  8. TOCILIZUMAB [Suspect]
     Dosage: 480 MG
     Route: 065
     Dates: start: 20110901
  9. TOCILIZUMAB [Suspect]
     Dosage: 480 MG
     Route: 065
     Dates: start: 20110929
  10. TOCILIZUMAB [Suspect]
     Dosage: 480 MG
     Route: 065
     Dates: start: 20111027
  11. TOCILIZUMAB [Suspect]
     Dosage: 480 MG
     Route: 065
     Dates: start: 20120105
  12. TOCILIZUMAB [Suspect]
     Dosage: 480 MG
     Route: 065
     Dates: start: 20120203
  13. TOCILIZUMAB [Suspect]
     Dosage: 480 MG
     Route: 065
     Dates: start: 20120302
  14. TOCILIZUMAB [Suspect]
     Route: 065
     Dates: start: 20120402
  15. TOCILIZUMAB [Suspect]
     Dosage: 480 MG
     Route: 065
     Dates: start: 20120430, end: 20120430
  16. EUPANTOL [Concomitant]
     Route: 065
  17. EUPANTOL [Concomitant]
     Route: 065
  18. INEXIUM [Concomitant]
     Route: 065
  19. CRESTOR [Concomitant]
     Route: 065
  20. CERTOLIZUMAB [Concomitant]
     Route: 065
  21. CORTANCYL [Concomitant]
     Route: 065
  22. CORTANCYL [Concomitant]
     Route: 065
     Dates: start: 20110427
  23. CORTANCYL [Concomitant]
     Route: 065
     Dates: start: 20110720
  24. CORTANCYL [Concomitant]
     Route: 065
     Dates: start: 20121005
  25. CORTANCYL [Concomitant]
     Route: 065
     Dates: start: 20120723
  26. METHOTREXATE [Concomitant]
     Route: 065
  27. METHOTREXATE [Concomitant]
     Route: 065
     Dates: start: 20120723

REACTIONS (2)
  - Spinal myelogram [Recovered/Resolved]
  - Intervertebral disc protrusion [Recovered/Resolved]
